FAERS Safety Report 9245882 (Version 6)
Quarter: 2013Q4

REPORT INFORMATION
  Report Type: Spontaneous
  Country: US (occurrence: US)
  Receive Date: 20130422
  Receipt Date: 20131128
  Transmission Date: 20140711
  Serious: Yes (Life-Threatening, Hospitalization)
  Sender: FDA-Public Use
  Company Number: US-JNJFOC-20130411612

PATIENT
  Age: 70 Year
  Sex: Male
  Weight: 86.4 kg

DRUGS (5)
  1. REMICADE [Suspect]
     Indication: CROHN^S DISEASE
     Dosage: SECOND DOSE
     Route: 042
     Dates: start: 20000905
  2. REMICADE [Suspect]
     Indication: CROHN^S DISEASE
     Route: 042
     Dates: start: 20000816
  3. REMICADE [Suspect]
     Indication: CROHN^S DISEASE
     Dosage: THIRD DOSE
     Route: 042
     Dates: start: 20000927, end: 20000927
  4. IMURAN [Suspect]
     Indication: CROHN^S DISEASE
     Route: 048
     Dates: start: 20000816, end: 20010802
  5. CIPROFLOXACIN [Concomitant]
     Indication: CROHN^S DISEASE
     Route: 048
     Dates: start: 20000809

REACTIONS (1)
  - B-cell lymphoma stage IV [Unknown]
